FAERS Safety Report 4613519-5 (Version None)
Quarter: 2005Q1

REPORT INFORMATION
  Report Type: 
  Country: None (occurrence: None)
  Receive Date: 20050321
  Receipt Date: 20020520
  Transmission Date: 20050727
  Serious: Yes (Other)
  Sender: FDA-Public Use
  Company Number: US-BRISTOL-MYERS SQUIBB COMPANY-11883352

PATIENT
  Age: 46 Year
  Sex: Female

DRUGS (7)
  1. STADOL [Suspect]
     Indication: MIGRAINE
     Dosage: 10 MG/ML X 3 OVER 53 PRESCRIPTIONS
     Route: 045
     Dates: start: 19970301, end: 20000501
  2. CALAN [Suspect]
  3. VALIUM [Concomitant]
  4. AMITRIPTYLINE HCL [Concomitant]
  5. HYDROCODONE BITARTRATE [Concomitant]
  6. ZANAFLEX [Concomitant]
  7. NEURONTIN [Concomitant]

REACTIONS (6)
  - ANXIETY [None]
  - CEREBROVASCULAR ACCIDENT [None]
  - CONVULSION [None]
  - DEPENDENCE [None]
  - DEPRESSION [None]
  - OEDEMA PERIPHERAL [None]
